FAERS Safety Report 24688485 (Version 3)
Quarter: 2025Q1

REPORT INFORMATION
  Report Type: Spontaneous
  Country: US (occurrence: US)
  Receive Date: 20241202
  Receipt Date: 20250114
  Transmission Date: 20250409
  Serious: Yes (Other)
  Sender: ABBVIE
  Company Number: US-ABBVIE-6022480

PATIENT
  Age: 80 Year
  Sex: Female

DRUGS (5)
  1. SKYRIZI [Suspect]
     Active Substance: RISANKIZUMAB-RZAA
     Indication: Product used for unknown indication
     Route: 058
  2. IBRANCE [Suspect]
     Active Substance: PALBOCICLIB
     Indication: Product used for unknown indication
     Dosage: STRENGTH: 125 MG, TAKE 1 CAPSULE (125 MG TOTAL) BY MOUTH DAILY, REFILLS 5, DISP: 21 CAPSULE
     Route: 048
     Dates: start: 20241018
  3. IBRANCE [Suspect]
     Active Substance: PALBOCICLIB
     Indication: Product used for unknown indication
     Route: 048
     Dates: start: 20220525
  4. LETROZOLE [Concomitant]
     Active Substance: LETROZOLE
     Indication: Product used for unknown indication
     Dosage: DAILY
  5. DENOSUMAB [Concomitant]
     Active Substance: DENOSUMAB
     Indication: Product used for unknown indication
     Dosage: EVERY 3 MONTHS

REACTIONS (8)
  - Cochlea implant [Unknown]
  - Neoplasm malignant [Unknown]
  - Infection susceptibility increased [Unknown]
  - Auditory disorder [Unknown]
  - Metastases to bone [Unknown]
  - Progesterone receptor assay positive [Unknown]
  - Oestrogen receptor assay positive [Unknown]
  - Breast cancer female [Unknown]
